FAERS Safety Report 8524972-9 (Version None)
Quarter: 2012Q3

REPORT INFORMATION
  Report Type: 
  Country: None (occurrence: None)
  Receive Date: 20120720
  Receipt Date: 20120706
  Transmission Date: 20120928
  Serious: Yes (Other)
  Sender: FDA-Public Use
  Company Number: ES-MYLANLABS-2012S1014087

PATIENT
  Age: 38 Year
  Sex: Female

DRUGS (6)
  1. BUSCAPINA [Concomitant]
     Indication: RENAL PAIN
     Route: 042
  2. DIPYRONE [Concomitant]
     Indication: RENAL PAIN
     Route: 042
  3. DIAZEPAM [Concomitant]
     Indication: RENAL PAIN
     Route: 042
  4. MEPERIDINE HCL [Concomitant]
     Indication: RENAL PAIN
     Route: 065
  5. ACETAMINOPHEN [Concomitant]
     Indication: RENAL PAIN
     Route: 042
  6. DICLOFENAC [Suspect]
     Indication: RENAL PAIN
     Route: 030

REACTIONS (3)
  - MATERNAL EXPOSURE DURING PREGNANCY [None]
  - NORMAL NEWBORN [None]
  - OLIGOHYDRAMNIOS [None]
